FAERS Safety Report 23630344 (Version 3)
Quarter: 2024Q2

REPORT INFORMATION
  Report Type: Report from Study
  Country: CA (occurrence: CA)
  Receive Date: 20240314
  Receipt Date: 20240409
  Transmission Date: 20240715
  Serious: Yes (Death, Hospitalization, Other)
  Sender: FDA-Public Use
  Company Number: CA-ARGENX-2024-ARGX-CA000220

PATIENT

DRUGS (2)
  1. VYVGART [Suspect]
     Active Substance: EFGARTIGIMOD ALFA-FCAB
     Indication: Product used for unknown indication
     Dosage: 690 MG
     Route: 065
  2. BENADRYL [Concomitant]
     Active Substance: DIPHENHYDRAMINE HYDROCHLORIDE
     Indication: Premedication
     Dosage: 25 MG
     Route: 048

REACTIONS (28)
  - Myasthenia gravis [Fatal]
  - Angina pectoris [Unknown]
  - Dysarthria [Unknown]
  - Secretion discharge [Unknown]
  - Dysphagia [Unknown]
  - Pain in extremity [Unknown]
  - Throat irritation [Recovered/Resolved]
  - Asthenia [Recovered/Resolved]
  - Discomfort [Recovered/Resolved]
  - Paraesthesia [Recovered/Resolved]
  - Pharyngeal paraesthesia [Recovered/Resolved]
  - Muscular weakness [Unknown]
  - Dysarthria [Unknown]
  - Dysphagia [Unknown]
  - Weight decreased [Unknown]
  - Epigastric discomfort [Not Recovered/Not Resolved]
  - Blood pressure decreased [Unknown]
  - Swelling [Recovered/Resolved]
  - Asthenia [Unknown]
  - Ill-defined disorder [Unknown]
  - Throat clearing [Not Recovered/Not Resolved]
  - Procedural dizziness [Unknown]
  - Dizziness [Recovered/Resolved]
  - Pruritus [Recovered/Resolved]
  - Pruritus [Recovered/Resolved]
  - Pruritus [Unknown]
  - Loss of therapeutic response [Unknown]
  - Drug ineffective [Unknown]

NARRATIVE: CASE EVENT DATE: 20240117
